FAERS Safety Report 8918025 (Version 2)
Quarter: 2012Q4

REPORT INFORMATION
  Report Type: 
  Country: JP (occurrence: JP)
  Receive Date: 20121120
  Receipt Date: 20121226
  Transmission Date: 20130627
  Serious: Yes (Other)
  Sender: FDA-Public Use
  Company Number: JP-ROCHE-1157085

PATIENT
  Age: 54 Year
  Sex: Female

DRUGS (1)
  1. RITUXIMAB [Suspect]
     Indication: COLD TYPE HAEMOLYTIC ANAEMIA
     Route: 042

REACTIONS (3)
  - B-cell small lymphocytic lymphoma [Unknown]
  - Anaemia [Unknown]
  - Night sweats [Unknown]
